FAERS Safety Report 10253180 (Version 2)
Quarter: 2014Q4

REPORT INFORMATION
  Report Type: Spontaneous
  Country: IT (occurrence: IT)
  Receive Date: 20140623
  Receipt Date: 20141006
  Transmission Date: 20150528
  Serious: Yes (Hospitalization)
  Sender: FDA-Public Use
  Company Number: IT-BRISTOL-MYERS SQUIBB COMPANY-21066113

PATIENT
  Age: 59 Year
  Sex: Female

DRUGS (5)
  1. METFORMIN HCL [Suspect]
     Active Substance: METFORMIN HYDROCHLORIDE
     Indication: DIABETES MELLITUS
     Route: 048
     Dates: start: 20140519, end: 20140607
  2. TAVOR [Concomitant]
     Active Substance: LORAZEPAM
     Route: 048
  3. LANSOPRAZOLE. [Suspect]
     Active Substance: LANSOPRAZOLE
     Route: 048
     Dates: start: 20140519, end: 20140607
  4. DOBETIN [Suspect]
     Active Substance: CYANOCOBALAMIN
     Dosage: 1DF= 20MCG/ML
     Route: 048
     Dates: start: 20140602, end: 20140607
  5. SOLDESAM [Concomitant]
     Active Substance: DEXAMETHASONE
     Dosage: 1DF=0.2 PERCENT ORAL DROPS, SOLUTION 10 ML BOTTLE
     Route: 048
     Dates: start: 20140519, end: 20140607

REACTIONS (2)
  - Urticaria [Recovered/Resolved]
  - Rash [Recovered/Resolved]

NARRATIVE: CASE EVENT DATE: 20140604
